FAERS Safety Report 5599614-5 (Version None)
Quarter: 2008Q1

REPORT INFORMATION
  Report Type: 
  Country: None (occurrence: None)
  Receive Date: 20080123
  Receipt Date: 20080116
  Transmission Date: 20080703
  Serious: Yes (Hospitalization)
  Sender: FDA-Public Use
  Company Number: ES-JNJFOC-20080104447

PATIENT
  Age: 57 Year
  Sex: Female

DRUGS (11)
  1. INFLIXIMAB [Suspect]
     Route: 042
  2. INFLIXIMAB [Suspect]
     Route: 042
  3. INFLIXIMAB [Suspect]
     Route: 042
  4. INFLIXIMAB [Suspect]
     Indication: RHEUMATOID ARTHRITIS
     Route: 042
  5. URBASON [Concomitant]
  6. INDOMETHACIN [Concomitant]
  7. OMEPRAZOLE [Concomitant]
  8. BLOKIUM [Concomitant]
     Indication: HYPERTENSION
  9. METHOTREXATE [Concomitant]
  10. METHOTREXATE [Concomitant]
     Dosage: EVERY 15 DAYS
  11. METHOTREXATE [Concomitant]
     Indication: RHEUMATOID ARTHRITIS

REACTIONS (2)
  - TRANSAMINASES INCREASED [None]
  - TUBERCULOSIS [None]
